FAERS Safety Report 9234681 (Version 2)
Quarter: 2013Q3

REPORT INFORMATION
  Report Type: Report from Study
  Country: DE (occurrence: DE)
  Receive Date: 20130416
  Receipt Date: 20130701
  Transmission Date: 20140515
  Serious: Yes (Hospitalization, Other)
  Sender: FDA-Public Use
  Company Number: DE-CELGENEUS-062-21880-13040701

PATIENT
  Age: 72 Year
  Sex: Male
  Weight: 67 kg

DRUGS (10)
  1. REVLIMID [Suspect]
     Indication: PLASMA CELL MYELOMA
     Dosage: 25 MILLIGRAM
     Route: 048
     Dates: start: 20120602, end: 201207
  2. REVLIMID [Suspect]
     Dosage: 10 MILLIGRAM
     Route: 048
     Dates: start: 201207, end: 201210
  3. REVLIMID [Suspect]
     Dosage: 15 MILLIGRAM
     Route: 048
     Dates: start: 201210
  4. REVLIMID [Suspect]
     Dosage: 15 MILLIGRAM
     Route: 048
     Dates: start: 20130318, end: 20130404
  5. BORTEZOMIB [Suspect]
     Indication: PLASMA CELL MYELOMA
     Route: 041
     Dates: start: 20110615
  6. DULOXETINE [Concomitant]
     Indication: NEUROPATHY PERIPHERAL
     Dosage: 30-120
     Route: 048
     Dates: start: 20130204, end: 20130317
  7. NOVALGIN [Concomitant]
     Indication: PAIN
     Route: 048
     Dates: end: 201303
  8. ZOLEDRONATE [Concomitant]
     Indication: BONE DISORDER
     Route: 041
     Dates: start: 201107, end: 20130312
  9. PALLADON [Concomitant]
     Indication: PAIN
     Route: 048
     Dates: start: 201106, end: 201303
  10. TAMSULOSIN [Concomitant]
     Indication: BENIGN PROSTATIC HYPERPLASIA
     Route: 048
     Dates: start: 201111, end: 201303

REACTIONS (1)
  - Guillain-Barre syndrome [Recovered/Resolved with Sequelae]
